FAERS Safety Report 16025652 (Version 1)
Quarter: 2019Q1

REPORT INFORMATION
  Report Type: Spontaneous
  Country: FR (occurrence: FR)
  Receive Date: 20190302
  Receipt Date: 20190302
  Transmission Date: 20190418
  Serious: Yes (Hospitalization)
  Sender: FDA-Public Use
  Company Number: FR-SUN PHARMACEUTICAL INDUSTRIES LTD-2019RR-200410

PATIENT
  Age: 57 Year
  Sex: Female
  Weight: 56 kg

DRUGS (10)
  1. NALTREXONE (CHLORHYDRATE DE) [Concomitant]
     Active Substance: NALTREXONE
     Indication: PRODUCT USED FOR UNKNOWN INDICATION
     Dosage: ()
     Route: 065
  2. ATENOLOL. [Suspect]
     Active Substance: ATENOLOL
     Indication: INTENTIONAL OVERDOSE
     Dosage: 750 MILLIGRAM
     Route: 048
     Dates: start: 20180903, end: 20180903
  3. DOXYLAMINE (SUCCINATE DE) [Suspect]
     Active Substance: DOXYLAMINE SUCCINATE
     Indication: INTENTIONAL OVERDOSE
     Dosage: ()
     Route: 048
     Dates: start: 20180903, end: 20180903
  4. BENERVA 250 MG, COMPRIME ENROBE [Concomitant]
     Indication: PRODUCT USED FOR UNKNOWN INDICATION
     Dosage: ()
     Route: 065
  5. VALSARTAN. [Suspect]
     Active Substance: VALSARTAN
     Indication: INTENTIONAL OVERDOSE
     Dosage: 150 MILLIGRAM
     Route: 048
     Dates: start: 20180903, end: 20180903
  6. IMOVANE [Concomitant]
     Active Substance: ZOPICLONE
     Indication: PRODUCT USED FOR UNKNOWN INDICATION
     Dosage: ()
     Route: 065
  7. PREGABALIN. [Suspect]
     Active Substance: PREGABALIN
     Indication: INTENTIONAL OVERDOSE
     Dosage: 375 MILLIGRAM
     Route: 048
     Dates: start: 20180903, end: 20180903
  8. AMLODIPINE [Suspect]
     Active Substance: AMLODIPINE BESYLATE
     Indication: INTENTIONAL OVERDOSE
     Dosage: 170 MILLIGRAM
     Route: 048
     Dates: start: 20180903, end: 20180903
  9. ACAMPROSATE BIOGARAN 333 MG, COMPRIME PELLICULE GASTRO-RESISTANT [Suspect]
     Active Substance: ACAMPROSATE CALCIUM
     Indication: INTENTIONAL OVERDOSE
     Dosage: 2331 MILLIGRAM
     Route: 048
     Dates: start: 20180903, end: 20180903
  10. FLUOXETINE [Suspect]
     Active Substance: FLUOXETINE HYDROCHLORIDE
     Indication: INTENTIONAL OVERDOSE
     Dosage: 280 MILLIGRAM
     Route: 048
     Dates: start: 20180903, end: 20180903

REACTIONS (2)
  - Coma [Recovered/Resolved]
  - Seizure [Recovered/Resolved]

NARRATIVE: CASE EVENT DATE: 20180903
